FAERS Safety Report 13674866 (Version 1)
Quarter: 2017Q2

REPORT INFORMATION
  Report Type: Spontaneous
  Country: US (occurrence: US)
  Receive Date: 20170621
  Receipt Date: 20170621
  Transmission Date: 20170830
  Serious: No
  Sender: FDA-Public Use
  Company Number: US-PFIZER INC-2017267553

PATIENT
  Sex: Female

DRUGS (1)
  1. XELJANZ [Suspect]
     Active Substance: TOFACITINIB CITRATE
     Dosage: 5 MG, UNK

REACTIONS (16)
  - Hypoaesthesia [Unknown]
  - Blood pressure increased [Unknown]
  - Joint stiffness [Unknown]
  - Fatigue [Unknown]
  - Pyrexia [Unknown]
  - Myalgia [Unknown]
  - Oedema peripheral [Unknown]
  - Musculoskeletal stiffness [Unknown]
  - Tinnitus [Unknown]
  - Back pain [Unknown]
  - Paraesthesia [Unknown]
  - Tenderness [Unknown]
  - Asthenia [Unknown]
  - Insomnia [Unknown]
  - Arthralgia [Unknown]
  - Pain [Unknown]
